FAERS Safety Report 6867084 (Version 2)
Quarter: 2020Q3

REPORT INFORMATION
  Report Type: Report from Study
  Country: US (occurrence: US)
  Receive Date: 20081226
  Receipt Date: 20090617
  Transmission Date: 20201104
  Serious: Yes (Other)
  Sender: FDA-Public Use
  Company Number: US-ROCHE-603070

PATIENT
  Age: 74 Year
  Sex: Female

DRUGS (1)
  1. IBANDRONIC ACID. [Suspect]
     Active Substance: IBANDRONIC ACID
     Indication: OSTEOPOROSIS
     Dosage: TAKEN TWICE
     Route: 048
     Dates: start: 200811, end: 200812

REACTIONS (3)
  - Gastrooesophageal reflux disease [Not Recovered/Not Resolved]
  - Renal impairment [Recovering/Resolving]
  - Granulomatosis with polyangiitis [Unknown]
